FAERS Safety Report 6937396-2 (Version None)
Quarter: 2010Q3

REPORT INFORMATION
  Report Type: 
  Country: None (occurrence: None)
  Receive Date: 20100823
  Receipt Date: 20100813
  Transmission Date: 20110219
  Serious: Yes (Death, Hospitalization)
  Sender: FDA-Public Use
  Company Number: ES-AMGEN-QUU426323

PATIENT
  Age: 78 Year
  Sex: Female

DRUGS (6)
  1. ENBREL [Suspect]
     Indication: RHEUMATOID ARTHRITIS
     Route: 058
     Dates: start: 20090528, end: 20100324
  2. METHOTREXATE [Interacting]
     Indication: RHEUMATOID ARTHRITIS
     Route: 048
     Dates: start: 20060208, end: 20100324
  3. MANIDON - SLOW RELEASE [Concomitant]
  4. DICLOFENAC [Concomitant]
     Indication: RHEUMATOID ARTHRITIS
     Route: 048
  5. DONEKA [Concomitant]
     Dosage: UNKNOWN
  6. FOLIC ACID [Concomitant]
     Route: 048
     Dates: start: 20060208, end: 20100324

REACTIONS (5)
  - ATRIAL FIBRILLATION [None]
  - COLORECTAL CANCER METASTATIC [None]
  - DRUG INTERACTION [None]
  - HYPERTENSION [None]
  - PNEUMONIA [None]
